FAERS Safety Report 13783102 (Version 1)
Quarter: 2017Q3

REPORT INFORMATION
  Report Type: Spontaneous
  Country: MX (occurrence: MX)
  Receive Date: 20170724
  Receipt Date: 20170724
  Transmission Date: 20171127
  Serious: Yes (Other)
  Sender: FDA-Public Use
  Company Number: MX-009507513-1707MEX009230

PATIENT
  Age: 21 Year
  Weight: 59 kg

DRUGS (2)
  1. BRIDION [Suspect]
     Active Substance: SUGAMMADEX
     Dosage: (STRENGTH: 100 MG/ML) DOSE
  2. SODIUM CHLORIDE. [Suspect]
     Active Substance: SODIUM CHLORIDE
     Dosage: 10 ML, UNK

REACTIONS (1)
  - Acute pulmonary oedema [Unknown]
